FAERS Safety Report 8771057 (Version 2)
Quarter: 2012Q4

REPORT INFORMATION
  Report Type: 
  Country: US (occurrence: US)
  Receive Date: 20120906
  Receipt Date: 20121018
  Transmission Date: 20130627
  Serious: No
  Sender: FDA-Public Use
  Company Number: US-PFIZER INC-2012217973

PATIENT
  Age: 86 Year
  Sex: Female
  Weight: 72.56 kg

DRUGS (3)
  1. CELEBREX [Suspect]
     Indication: OSTEOARTHRITIS
     Dosage: 200 mg, UNK
  2. BEXTRA [Suspect]
     Indication: OSTEOARTHRITIS
     Dosage: UNK
  3. VIOXX [Suspect]
     Indication: OSTEOARTHRITIS
     Dosage: UNK

REACTIONS (3)
  - Drug intolerance [Unknown]
  - Full blood count decreased [Unknown]
  - Adverse drug reaction [Unknown]
